FAERS Safety Report 25901304 (Version 1)
Quarter: 2025Q4

REPORT INFORMATION
  Report Type: Spontaneous
  Country: US (occurrence: US)
  Receive Date: 20251009
  Receipt Date: 20251009
  Transmission Date: 20260118
  Serious: Yes (Hospitalization)
  Sender: VERTEX
  Company Number: US-VERTEX PHARMACEUTICALS-2025-016492

PATIENT
  Age: 78 Year
  Sex: Male

DRUGS (6)
  1. SUZETRIGINE [Suspect]
     Active Substance: SUZETRIGINE
     Indication: Pain
     Dosage: UNK
     Route: 048
     Dates: start: 20250922, end: 20250926
  2. OXYCODONE AND ACETAMINOPHEN [Concomitant]
     Active Substance: ACETAMINOPHEN\OXYCODONE HYDROCHLORIDE
     Indication: Knee arthroplasty
  3. ASPIRIN [Concomitant]
     Active Substance: ASPIRIN
     Indication: Knee arthroplasty
     Dosage: UNK
  4. PERCOCET [Concomitant]
     Active Substance: ACETAMINOPHEN\OXYCODONE HYDROCHLORIDE
     Indication: Knee arthroplasty
  5. CEFAZOLIN [Concomitant]
     Active Substance: CEFAZOLIN
     Indication: Preoperative care
     Dosage: UNK
  6. CEFAZOLIN [Concomitant]
     Active Substance: CEFAZOLIN
     Indication: Knee arthroplasty

REACTIONS (2)
  - Pharyngeal swelling [Recovered/Resolved]
  - Pyrexia [Unknown]

NARRATIVE: CASE EVENT DATE: 20250901
